FAERS Safety Report 6311055-1 (Version None)
Quarter: 2009Q3

REPORT INFORMATION
  Report Type: 
  Country: None (occurrence: None)
  Receive Date: 20090817
  Receipt Date: 20090806
  Transmission Date: 20100115
  Serious: Yes (Hospitalization)
  Sender: FDA-Public Use
  Company Number: CA-JNJFOC-20090704548

PATIENT
  Sex: Female
  Weight: 81 kg

DRUGS (4)
  1. REMICADE [Suspect]
     Dosage: HAS RECEIVED 41 DOSES
     Route: 042
  2. REMICADE [Suspect]
     Indication: ANKYLOSING SPONDYLITIS
     Route: 042
  3. METHOTREXATE [Concomitant]
     Route: 058
  4. PREDNISONE [Concomitant]

REACTIONS (2)
  - B-CELL LYMPHOMA [None]
  - INTESTINAL OBSTRUCTION [None]
